FAERS Safety Report 8409052 (Version 2)
Quarter: 2013Q2

REPORT INFORMATION
  Report Type: Spontaneous
  Country: US (occurrence: None)
  Receive Date: 20111227
  Receipt Date: 20120426
  Transmission Date: 20140414
  Serious: Yes (Other)
  Sender: FDA-Public Use
  Company Number: PHEH2011US06025

PATIENT
  Age: 74 Year
  Sex: Female

DRUGS (7)
  1. GILENYA [Suspect]
     Indication: MULTIPLE SCLEROSIS
     Dosage: 0.5 MG, QD, ORAL
     Route: 048
     Dates: start: 201105
  2. PLAVIX [Concomitant]
  3. RANITIDINE HYDROCHLORIDE [Concomitant]
  4. BACLOFEN [Concomitant]
  5. LEVOTHYROXINE SODIUM [Concomitant]
  6. PREDNISONE [Concomitant]
  7. ANTICOAGULANTS (ANTICOAGULANTS) [Concomitant]

REACTIONS (5)
  - DYSKINESIA [None]
  - ALOPECIA [None]
  - Blepharospasm [None]
  - Visual impairment [None]
  - Vision blurred [None]
